FAERS Safety Report 8811206 (Version 4)
Quarter: 2012Q4

REPORT INFORMATION
  Report Type: 
  Country: AU (occurrence: AU)
  Receive Date: 20120927
  Receipt Date: 20121106
  Transmission Date: 20130627
  Serious: Yes (Other)
  Sender: FDA-Public Use
  Company Number: PHHY2012AU082918

PATIENT
  Age: 58 Year
  Sex: Female

DRUGS (1)
  1. CLOZARIL [Suspect]
     Indication: SCHIZOPHRENIA
     Dosage: 500 mg
     Route: 048
     Dates: start: 20120429, end: 20120923

REACTIONS (7)
  - Breast cancer stage II [Unknown]
  - Breast discharge [Unknown]
  - White blood cell count decreased [Recovered/Resolved]
  - Neutropenia [Unknown]
  - Neutrophil count decreased [Recovered/Resolved]
  - Neutrophil count increased [Unknown]
  - White blood cell count increased [Unknown]
